FAERS Safety Report 7038413-4 (Version None)
Quarter: 2010Q4

REPORT INFORMATION
  Report Type: 
  Country: None (occurrence: None)
  Receive Date: 20101011
  Receipt Date: 20100426
  Transmission Date: 20110411
  Serious: No
  Sender: FDA-Public Use
  Company Number: US-PFIZER INC-2010053229

PATIENT
  Sex: Male
  Weight: 68.027 kg

DRUGS (3)
  1. GABAPENTIN [Suspect]
     Indication: TRIGEMINAL NEURALGIA
     Dosage: 900 MG, ONCE DAILY
     Route: 048
     Dates: start: 20100330
  2. IBUPROFEN [Concomitant]
     Dosage: UNK
  3. BACLOFEN [Concomitant]
     Indication: MUSCLE RELAXANT THERAPY
     Dosage: UNK

REACTIONS (1)
  - FACIAL PAIN [None]
